FAERS Safety Report 15027987 (Version 1)
Quarter: 2018Q2

REPORT INFORMATION
  Report Type: Spontaneous
  Country: CA (occurrence: CA)
  Receive Date: 20180619
  Receipt Date: 20180619
  Transmission Date: 20180711
  Serious: Yes (Death, Other)
  Sender: FDA-Public Use
  Company Number: CA-ALKEM LABORATORIES LIMITED-CA-ALKEM-2018-04085

PATIENT

DRUGS (10)
  1. CAPECITABINE. [Suspect]
     Active Substance: CAPECITABINE
     Dosage: 950 MG/M2, BID
     Route: 048
  2. IRINOTECAN [Suspect]
     Active Substance: IRINOTECAN
     Indication: COLORECTAL CANCER METASTATIC
     Dosage: 160 MG/M2, WITH INCREASES IN 10-MG/M2 INCREMENTS
     Route: 042
  3. XELODA [Suspect]
     Active Substance: CAPECITABINE
     Dosage: 850 MG/M2, BID
     Route: 048
  4. XELODA [Suspect]
     Active Substance: CAPECITABINE
     Dosage: 1000 MG/M2, BID
     Route: 048
  5. CAPECITABINE. [Suspect]
     Active Substance: CAPECITABINE
     Dosage: 850 MG/M2, BID
     Route: 048
  6. OXALIPLATIN. [Suspect]
     Active Substance: OXALIPLATIN
     Indication: COLORECTAL CANCER METASTATIC
     Dosage: 75 MG/M2, INCREASES IN 5-MG/M2 INCREMENTS
     Route: 065
  7. XELODA [Suspect]
     Active Substance: CAPECITABINE
     Dosage: 950 MG/M2, BID
     Route: 048
  8. CAPECITABINE. [Suspect]
     Active Substance: CAPECITABINE
     Indication: COLORECTAL CANCER METASTATIC
     Dosage: 750 MG/M2, BID
     Route: 048
  9. CAPECITABINE. [Suspect]
     Active Substance: CAPECITABINE
     Dosage: 1000 MG/M2, BID
     Route: 048
  10. XELODA [Suspect]
     Active Substance: CAPECITABINE
     Indication: COLORECTAL CANCER METASTATIC
     Dosage: 750 MG/M2, BID
     Route: 048

REACTIONS (3)
  - Septic shock [Fatal]
  - Febrile neutropenia [Unknown]
  - Aspiration [Fatal]
